FAERS Safety Report 15751535 (Version 2)
Quarter: 2019Q1

REPORT INFORMATION
  Report Type: Spontaneous
  Country: GB (occurrence: GB)
  Receive Date: 20181221
  Receipt Date: 20190107
  Transmission Date: 20190417
  Serious: Yes (Hospitalization)
  Sender: FDA-Public Use
  Company Number: GB-PFIZER INC-18077

PATIENT
  Age: 22 Month
  Sex: Female

DRUGS (11)
  1. PHENYTOIN. [Suspect]
     Active Substance: PHENYTOIN
     Indication: SEIZURE
     Dosage: UNK
     Route: 042
  2. QUININE SULPHATE [Interacting]
     Active Substance: QUININE SULFATE
     Dosage: 6.7 MG/KG THREE TIMES DAILY
     Route: 042
  3. QUININE SULPHATE [Interacting]
     Active Substance: QUININE SULFATE
     Dosage: 10 MG/KG THREE TIMES DAILY
     Route: 048
  4. TOPIRAMATE. [Concomitant]
     Active Substance: TOPIRAMATE
     Indication: SEIZURE
     Dosage: UNK
  5. PARALDEHYDE [Concomitant]
     Active Substance: PARALDEHYDE
     Indication: SEIZURE
     Dosage: UNK
     Route: 054
  6. SULFADOXINE PYRIMETHAMINE [Interacting]
     Active Substance: PYRIMETHAMINE\SULFADOXINE
     Indication: PLASMODIUM FALCIPARUM INFECTION
     Dosage: UNK
  7. QUININE SULPHATE [Interacting]
     Active Substance: QUININE SULFATE
     Dosage: 10 MG/KG THREE TIMES DAILY
     Route: 042
  8. QUININE SULPHATE [Interacting]
     Active Substance: QUININE SULFATE
     Dosage: 10 MG/KG THREE TIMES DAILY
     Route: 048
  9. VALPROATE SODIUM. [Concomitant]
     Active Substance: VALPROATE SODIUM
     Indication: SEIZURE
     Dosage: UNK
  10. QUININE SULPHATE [Interacting]
     Active Substance: QUININE SULFATE
     Dosage: 20 MG/KG LOADING DOSE
     Route: 042
  11. QUININE SULPHATE [Interacting]
     Active Substance: QUININE SULFATE
     Indication: PLASMODIUM FALCIPARUM INFECTION
     Dosage: 20 MG/KG (LOADING DOSE)
     Route: 042

REACTIONS (11)
  - Tachypnoea [Recovered/Resolved]
  - Generalised tonic-clonic seizure [Recovered/Resolved]
  - Status epilepticus [Unknown]
  - Depressed level of consciousness [Recovered/Resolved]
  - Irritability [Recovered/Resolved]
  - Pyrexia [Recovered/Resolved]
  - Drug interaction [Recovered/Resolved]
  - Tachycardia [Recovered/Resolved]
  - Drug level below therapeutic [Recovered/Resolved]
  - Plasmodium falciparum infection [Recovered/Resolved]
  - Drug effect decreased [Recovered/Resolved]
